FAERS Safety Report 7109713-4 (Version None)
Quarter: 2010Q4

REPORT INFORMATION
  Report Type: 
  Country: None (occurrence: None)
  Receive Date: 20101118
  Receipt Date: 20101105
  Transmission Date: 20110411
  Serious: Yes (Hospitalization)
  Sender: FDA-Public Use
  Company Number: US-ELI_LILLY_AND_COMPANY-US201009006148

PATIENT
  Sex: Female

DRUGS (3)
  1. FORTEO [Suspect]
     Indication: OSTEOPOROSIS
  2. ANTIHYPERTENSIVES [Concomitant]
  3. VITAMIN TAB [Concomitant]

REACTIONS (1)
  - STAPHYLOCOCCAL INFECTION [None]
